FAERS Safety Report 7769779-5 (Version None)
Quarter: 2011Q3

REPORT INFORMATION
  Report Type: 
  Country: None (occurrence: None)
  Receive Date: 20110922
  Receipt Date: 20100527
  Transmission Date: 20111222
  Serious: No
  Sender: FDA-Public Use
  Company Number: US-ASTRAZENECA-2010SE39389

PATIENT
  Sex: Female

DRUGS (6)
  1. GLYBURIDE [Concomitant]
     Dates: start: 20090413
  2. HYDROCHLOROTHIAZIDE [Concomitant]
     Dates: start: 20090413
  3. SEROQUEL [Suspect]
     Route: 048
     Dates: start: 20080116
  4. CHLORPROMAZINE [Concomitant]
     Dates: start: 20090413
  5. LABETALOL HCL [Concomitant]
     Dates: start: 20080116
  6. METOPROLOL TARTRATE [Concomitant]
     Dates: start: 20090413

REACTIONS (1)
  - ILL-DEFINED DISORDER [None]
